FAERS Safety Report 6860903-5 (Version None)
Quarter: 2010Q3

REPORT INFORMATION
  Report Type: 
  Country: None (occurrence: None)
  Receive Date: 20100715
  Receipt Date: 20100707
  Transmission Date: 20110219
  Serious: Yes (Other)
  Sender: FDA-Public Use
  Company Number: 2010US002659

PATIENT
  Age: 42 Year
  Sex: Female
  Weight: 96 kg

DRUGS (8)
  1. ADENOSCAN [Suspect]
     Indication: SCAN MYOCARDIAL PERFUSION
     Dosage: 73.2 MG, TOTAL DOSE, IV NOS
     Route: 042
     Dates: start: 20100625, end: 20100625
  2. ATENOLOL [Concomitant]
  3. WELCHOL [Concomitant]
  4. ASPIRIN [Concomitant]
  5. PRILOSEC (OMEPRAZOLE) [Concomitant]
  6. LEXAPRO [Concomitant]
  7. HYDROCHLOROTHIAZIDE [Concomitant]
  8. MULTIVITAMIN [Concomitant]

REACTIONS (5)
  - ABDOMINAL DISCOMFORT [None]
  - CHEST PAIN [None]
  - DIZZINESS [None]
  - HEADACHE [None]
  - HYPERSENSITIVITY [None]
